FAERS Safety Report 25497077 (Version 1)
Quarter: 2025Q3

REPORT INFORMATION
  Report Type: Report from Study
  Country: KR (occurrence: KR)
  Receive Date: 20250701
  Receipt Date: 20250701
  Transmission Date: 20251021
  Serious: Yes (Death, Hospitalization, Other)
  Sender: JOHNSON AND JOHNSON
  Company Number: KR-JNJFOC-20250632520

PATIENT
  Age: 72 Year
  Sex: Female
  Weight: 46 kg

DRUGS (4)
  1. LAZERTINIB MESYLATE [Suspect]
     Active Substance: LAZERTINIB MESYLATE
     Indication: Non-small cell lung cancer
     Route: 048
     Dates: start: 20240312, end: 20240429
  2. LAZERTINIB MESYLATE [Suspect]
     Active Substance: LAZERTINIB MESYLATE
     Route: 048
     Dates: start: 20240510, end: 20240607
  3. NALOXONE HYDROCHLORIDE\OXYCODONE HYDROCHLORIDE [Concomitant]
     Active Substance: NALOXONE HYDROCHLORIDE\OXYCODONE HYDROCHLORIDE
     Indication: Cancer pain
     Route: 048
     Dates: start: 20240318, end: 20240617
  4. DICAMAX [Concomitant]
     Indication: Metastases to bone
     Route: 048
     Dates: start: 20240312, end: 20240617

REACTIONS (2)
  - Pneumonitis [Fatal]
  - Deep vein thrombosis [Recovered/Resolved]

NARRATIVE: CASE EVENT DATE: 20240416
